FAERS Safety Report 4407607-6 (Version None)
Quarter: 2004Q3

REPORT INFORMATION
  Report Type: 
  Country: None (occurrence: None)
  Receive Date: 20040721
  Receipt Date: 20040708
  Transmission Date: 20050211
  Serious: Yes (Hospitalization)
  Sender: FDA-Public Use
  Company Number: 207856

PATIENT
  Age: 54 Year
  Sex: Female
  Weight: 67 kg

DRUGS (8)
  1. HERCEPTIN [Suspect]
     Indication: BREAST CANCER METASTATIC
     Dosage: SEE IMAGE
     Route: 042
     Dates: start: 20040206, end: 20040206
  2. HERCEPTIN [Suspect]
     Indication: BREAST CANCER METASTATIC
     Dosage: SEE IMAGE
     Route: 042
     Dates: start: 20040213
  3. DOCETAXEL (DOCETAXEL) [Suspect]
     Indication: BREAST CANCER METASTATIC
     Dosage: 75 MG, Q3W, INTRAVENOUS
     Route: 042
     Dates: start: 20040207
  4. CARBOPLATIN [Suspect]
     Indication: BREAST CANCER METASTATIC
     Dosage: 6 MG/ML, QMIN, INTRAVENOUS
     Route: 042
     Dates: start: 20040207
  5. DEXAMETHASONE [Concomitant]
  6. DEXAMETHASONE [Concomitant]
  7. RANITIDINE [Concomitant]
  8. IV FLUIDS [Concomitant]

REACTIONS (6)
  - ASTHENIA [None]
  - DEHYDRATION [None]
  - FACIAL PALSY [None]
  - METASTASES TO CENTRAL NERVOUS SYSTEM [None]
  - NAUSEA [None]
  - VOMITING [None]
